APPROVED DRUG PRODUCT: DOPAMINE HYDROCHLORIDE
Active Ingredient: DOPAMINE HYDROCHLORIDE
Strength: 80MG/ML
Dosage Form/Route: INJECTABLE;INJECTION
Application: A070657 | Product #001
Applicant: ABBOTT LABORATORIES HOSP PRODUCTS DIV
Approved: Jan 24, 1989 | RLD: No | RS: No | Type: DISCN